FAERS Safety Report 13664398 (Version 1)
Quarter: 2017Q2

REPORT INFORMATION
  Report Type: Spontaneous
  Country: US (occurrence: US)
  Receive Date: 20170616
  Receipt Date: 20170616
  Transmission Date: 20170830
  Serious: No
  Sender: FDA-Public Use
  Company Number: None

PATIENT
  Sex: Female

DRUGS (1)
  1. IBRANCE [Suspect]
     Active Substance: PALBOCICLIB
     Indication: DRUG THERAPY
     Dosage: 125MG DAILY 21 DAYS ON 7 DAYS OFF BY MOUTH
     Route: 048
     Dates: start: 20170119, end: 20170614

REACTIONS (1)
  - Drug ineffective [None]
